FAERS Safety Report 10365726 (Version 1)
Quarter: 2014Q3

REPORT INFORMATION
  Report Type: Spontaneous
  Country: US (occurrence: US)
  Receive Date: 20140806
  Receipt Date: 20140806
  Transmission Date: 20150326
  Serious: Yes (Life-Threatening, Hospitalization)
  Sender: FDA-Public Use
  Company Number: US-FRI-1000069635

PATIENT
  Sex: Female

DRUGS (4)
  1. UNSPECIFIED MEDICATIONS NOS [Concomitant]
  2. RISPERDAL [Suspect]
     Active Substance: RISPERIDONE
     Dates: start: 201407
  3. VITAMINS [Concomitant]
     Active Substance: VITAMINS
  4. SAPHRIS [Suspect]
     Active Substance: ASENAPINE MALEATE
     Dates: end: 201407

REACTIONS (8)
  - Suicidal behaviour [Unknown]
  - Peripheral swelling [Unknown]
  - Depression [Unknown]
  - Joint swelling [Unknown]
  - Memory impairment [Unknown]
  - Swelling [Unknown]
  - Feeling abnormal [Unknown]
  - Anxiety [Unknown]

NARRATIVE: CASE EVENT DATE: 201407
